FAERS Safety Report 6310568-6 (Version None)
Quarter: 2009Q3

REPORT INFORMATION
  Report Type: 
  Country: None (occurrence: None)
  Receive Date: 20090814
  Receipt Date: 20090611
  Transmission Date: 20100115
  Serious: Yes (Other)
  Sender: FDA-Public Use
  Company Number: US-BRISTOL-MYERS SQUIBB COMPANY-14326979

PATIENT
  Age: 60 Year
  Sex: Female
  Weight: 58 kg

DRUGS (5)
  1. IXEMPRA KIT [Suspect]
     Indication: BREAST CANCER METASTATIC
     Dosage: TREATMENT INITIATED ON 01JUL2008 INFUSION OVER 3 HRS
     Route: 042
     Dates: start: 20080902, end: 20080902
  2. ALPRAZOLAM [Concomitant]
  3. CETIRIZINE HCL [Concomitant]
  4. DOCUSATE SODIUM + SENNA [Concomitant]
     Dosage: QHS
  5. ZOLEDRONIC ACID [Concomitant]
     Dosage: Q1M

REACTIONS (1)
  - INFUSION RELATED REACTION [None]
